FAERS Safety Report 5025157-3 (Version None)
Quarter: 2006Q2

REPORT INFORMATION
  Report Type: 
  Country: None (occurrence: None)
  Receive Date: 20060609
  Receipt Date: 20060609
  Transmission Date: 20061013
  Serious: Yes (Disabling)
  Sender: FDA-Public Use
  Company Number: None

PATIENT
  Age: 67 Year
  Sex: Female
  Weight: 89 kg

DRUGS (2)
  1. INTEGRILIN [Suspect]
     Indication: ANGINA UNSTABLE
     Dosage: 180 MCG /KG, THEN 2 MCG/KG/MIN    IV DRIP
     Route: 041
     Dates: start: 20060523, end: 20060524
  2. INTEGRILIN [Suspect]
     Indication: CHEST PAIN
     Dosage: 180 MCG /KG, THEN 2 MCG/KG/MIN    IV DRIP
     Route: 041
     Dates: start: 20060523, end: 20060524

REACTIONS (1)
  - THROMBOCYTOPENIA [None]
